FAERS Safety Report 21364774 (Version 2)
Quarter: 2022Q4

REPORT INFORMATION
  Report Type: Spontaneous
  Country: US (occurrence: US)
  Receive Date: 20220922
  Receipt Date: 20221219
  Transmission Date: 20230113
  Serious: No
  Sender: FDA-Public Use
  Company Number: US-NOVARTISTESTPH-NVSC2022US126515

PATIENT
  Sex: Female

DRUGS (1)
  1. COSENTYX [Suspect]
     Active Substance: SECUKINUMAB
     Indication: Product used for unknown indication
     Dosage: 1 DOSAGE FORM, QW, INJECT ONE PEN SUBCUTANEOUSLY ONCE WEEKLY FOR 5 WEEKS (WEEK 0, 1, 2,3 AND 4), THE
     Route: 065
     Dates: start: 20220426

REACTIONS (2)
  - Accidental exposure to product [Unknown]
  - Device defective [Unknown]
